FAERS Safety Report 6465292-6 (Version None)
Quarter: 2009Q4

REPORT INFORMATION
  Report Type: 
  Country: None (occurrence: None)
  Receive Date: 20091201
  Receipt Date: 20090511
  Transmission Date: 20100525
  Serious: No
  Sender: FDA-Public Use
  Company Number: US-AMGEN-KDL264650

PATIENT
  Sex: Female
  Weight: 77.2 kg

DRUGS (4)
  1. ENBREL [Suspect]
     Indication: PSORIATIC ARTHROPATHY
     Route: 058
     Dates: start: 20070827
  2. SYNTHROID [Concomitant]
  3. CALCIUM WITH VITAMIN D [Concomitant]
  4. MULTI-VITAMINS [Concomitant]

REACTIONS (3)
  - NASOPHARYNGITIS [None]
  - OROPHARYNGEAL PAIN [None]
  - SINUS CONGESTION [None]
